FAERS Safety Report 17071654 (Version 4)
Quarter: 2019Q4

REPORT INFORMATION
  Report Type: Spontaneous
  Country: US (occurrence: US)
  Receive Date: 20191125
  Receipt Date: 20191226
  Transmission Date: 20200122
  Serious: No
  Sender: FDA-Public Use
  Company Number: US-PFIZER INC-2019505907

PATIENT
  Age: 73 Year
  Sex: Female
  Weight: 74.38 kg

DRUGS (1)
  1. IBRANCE [Suspect]
     Active Substance: PALBOCICLIB
     Indication: BREAST CANCER METASTATIC
     Dosage: 125 MG, CYCLIC(DAY 1-21 Q 28 DAYS)/(DAILY X 21 DAYS, EVERY 28 DAYS)
     Route: 048
     Dates: start: 20191114

REACTIONS (6)
  - Paraesthesia [Unknown]
  - Weight decreased [Unknown]
  - Pruritus [Unknown]
  - Oral pain [Unknown]
  - Stomatitis [Unknown]
  - Feeding disorder [Unknown]
